FAERS Safety Report 8874036 (Version 5)
Quarter: 2013Q3

REPORT INFORMATION
  Report Type: Spontaneous
  Country: US (occurrence: US)
  Receive Date: 20121030
  Receipt Date: 20130820
  Transmission Date: 20140515
  Serious: Yes (Hospitalization, Disabling, Other)
  Sender: FDA-Public Use
  Company Number: US-009507513-1210USA007175

PATIENT
  Sex: Female
  Weight: 61.22 kg

DRUGS (2)
  1. FOSAMAX [Suspect]
     Indication: OSTEOPOROSIS
     Dosage: 70 MG, QW
     Route: 048
     Dates: start: 20021004, end: 20070717
  2. ALENDRONATE SODIUM [Suspect]
     Indication: OSTEOPOROSIS
     Dosage: 70 MG, QW
     Route: 048
     Dates: start: 20080612, end: 20110323

REACTIONS (19)
  - Open reduction of fracture [Unknown]
  - Low turnover osteopathy [Not Recovered/Not Resolved]
  - Visual field defect [Unknown]
  - Femur fracture [Not Recovered/Not Resolved]
  - Hypothyroidism [Unknown]
  - Vitrectomy [Unknown]
  - Rheumatoid arthritis [Unknown]
  - Visual acuity reduced [Unknown]
  - Impaired healing [Unknown]
  - Hot flush [Unknown]
  - Nodule [Unknown]
  - Osteopenia [Unknown]
  - Fall [Unknown]
  - Protein total decreased [Unknown]
  - Blood albumin decreased [Unknown]
  - Macular hole [Unknown]
  - Back pain [Unknown]
  - Blood calcium decreased [Unknown]
  - Back pain [Unknown]
